FAERS Safety Report 7525973-X (Version None)
Quarter: 2011Q2

REPORT INFORMATION
  Report Type: 
  Country: None (occurrence: None)
  Receive Date: 20110606
  Receipt Date: 20110525
  Transmission Date: 20111010
  Serious: Yes (Hospitalization)
  Sender: FDA-Public Use
  Company Number: JP-TEVA-225233ISR

PATIENT
  Sex: Female
  Weight: 42.9 kg

DRUGS (16)
  1. AXITINIB [Suspect]
     Indication: NON-SMALL CELL LUNG CANCER
     Dosage: 10 MILLIGRAM;
     Route: 048
     Dates: start: 20091014, end: 20091224
  2. GRANISETRON [Concomitant]
     Dates: start: 20091014
  3. OLMESARTAN MEDOXOMIL [Concomitant]
     Indication: HYPERTENSION
     Dates: start: 20091017
  4. CARVEDILOL [Concomitant]
     Indication: HYPERTENSION
     Route: 048
     Dates: start: 20090730
  5. DEXAMETHASONE [Concomitant]
     Dates: start: 20091014
  6. SUMATRIPTAN SUCCINATE [Concomitant]
     Indication: HEADACHE
  7. NIFEDIPINE [Concomitant]
     Indication: HYPERTENSION
     Route: 048
     Dates: start: 20091025
  8. POLAPREZINC [Concomitant]
     Indication: ABDOMINAL DISCOMFORT
     Route: 048
  9. ETIZOLAM [Concomitant]
     Indication: INSOMNIA
     Route: 048
     Dates: start: 20091003
  10. SOLITA-T3 (POTASSIUM CHLORIDE, SODIUM CHLORIDE, SODIUM LACTATE) [Concomitant]
     Dates: start: 20091014
  11. CISPLATIN [Suspect]
     Indication: NON-SMALL CELL LUNG CANCER
     Route: 042
     Dates: start: 20091014, end: 20091217
  12. MANNITOL [Concomitant]
     Dates: start: 20091014
  13. METOCLOPRAMIDE [Concomitant]
     Dates: start: 20091015
  14. PEMETREXED [Suspect]
     Indication: NON-SMALL CELL LUNG CANCER
     Route: 042
     Dates: start: 20091014, end: 20091217
  15. FUROSEMIDE [Concomitant]
     Dates: start: 20091014
  16. BROTIZOLAM [Concomitant]
     Indication: INSOMNIA
     Dates: start: 20091216

REACTIONS (1)
  - DEPRESSION [None]
